FAERS Safety Report 6304986-X (Version None)
Quarter: 2009Q3

REPORT INFORMATION
  Report Type: 
  Country: None (occurrence: None)
  Receive Date: 20090806
  Receipt Date: 20090603
  Transmission Date: 20100115
  Serious: Yes (Other)
  Sender: FDA-Public Use
  Company Number: WAES 0906USA00706

PATIENT
  Age: 68 Year
  Sex: Male

DRUGS (9)
  1. JANUMET [Suspect]
     Indication: TYPE 2 DIABETES MELLITUS
     Dosage: 1000MG/50 MG/BID/PO
     Route: 048
     Dates: start: 20071101
  2. ADVAIR HFA [Concomitant]
  3. PROSCAR [Concomitant]
  4. ASPIRIN [Concomitant]
  5. CALCIUM (UNSPECIFIED) [Concomitant]
  6. FENOFIBRATE [Concomitant]
  7. LISINOPRIL [Concomitant]
  8. VITAMIN D(UNSPECIFIED) [Concomitant]
  9. VITAMINS (UNSPECIFIED) [Concomitant]

REACTIONS (1)
  - PANCREATITIS [None]
